FAERS Safety Report 5386686-6 (Version None)
Quarter: 2007Q3

REPORT INFORMATION
  Report Type: 
  Country: None (occurrence: None)
  Receive Date: 20070713
  Receipt Date: 20070704
  Transmission Date: 20080115
  Serious: Yes (Death)
  Sender: FDA-Public Use
  Company Number: DE-BRISTOL-MYERS SQUIBB COMPANY-13795877

PATIENT
  Age: 52 Year
  Sex: Male

DRUGS (4)
  1. CYCLOPHOSPHAMIDE [Suspect]
     Indication: BONE MARROW CONDITIONING REGIMEN
     Dates: start: 20060908, end: 20060911
  2. UROMITEXAN [Concomitant]
     Dates: start: 20060908, end: 20060911
  3. HYDROCORTISONE [Concomitant]
     Dates: start: 20060908, end: 20060911
  4. FOSCARNET [Concomitant]
     Dates: start: 20061023, end: 20070127

REACTIONS (3)
  - CYSTITIS HAEMORRHAGIC [None]
  - MULTI-ORGAN FAILURE [None]
  - UROSEPSIS [None]
